FAERS Safety Report 7644763 (Version 2)
Quarter: 2012Q4

REPORT INFORMATION
  Report Type: Report from Study
  Country: FR (occurrence: FR)
  Receive Date: 20101028
  Receipt Date: 20121001
  Transmission Date: 20130627
  Serious: Yes (Hospitalization)
  Sender: FDA-Public Use
  Company Number: PHHO2010FR11661

PATIENT
  Age: 55 Year
  Sex: Male

DRUGS (3)
  1. NEORAL [Suspect]
     Indication: RENAL TRANSPLANT
     Dosage: 400 mg, UNK
     Route: 048
     Dates: start: 20100723, end: 20100724
  2. MYCOPHENOLIC ACID [Suspect]
     Indication: RENAL TRANSPLANT
     Dates: start: 20100723
  3. CERTICAN [Suspect]
     Indication: RENAL TRANSPLANT
     Dosage: 4 mg, UNK
     Route: 048
     Dates: start: 20101127

REACTIONS (1)
  - Complications of transplanted kidney [Recovered/Resolved with Sequelae]
